FAERS Safety Report 4686808-6 (Version None)
Quarter: 2005Q2

REPORT INFORMATION
  Report Type: 
  Country: None (occurrence: None)
  Receive Date: 20050608
  Receipt Date: 20050530
  Transmission Date: 20051028
  Serious: Yes (Other)
  Sender: FDA-Public Use
  Company Number: 2005JP001093

PATIENT
  Age: 77 Year
  Sex: Male

DRUGS (2)
  1. FUNGUARD(MICAFUNGIN) INJECTION [Suspect]
     Indication: BRONCHOPULMONARY ASPERGILLOSIS
     Dosage: 150.00 MG UID/QD, IV DRIP
     Route: 041
     Dates: start: 20050523, end: 20050523
  2. MEROPEN (MEROPENEM) INJECTION [Concomitant]

REACTIONS (3)
  - CARDIAC FAILURE [None]
  - CHEST PAIN [None]
  - VENTRICULAR EXTRASYSTOLES [None]
